FAERS Safety Report 13454195 (Version 1)
Quarter: 2017Q2

REPORT INFORMATION
  Report Type: Spontaneous
  Country: US (occurrence: US)
  Receive Date: 20170418
  Receipt Date: 20170418
  Transmission Date: 20170830
  Serious: No
  Sender: FDA-Public Use
  Company Number: US-ALLERGAN-1669827US

PATIENT
  Age: 58 Year
  Sex: Female
  Weight: 65.76 kg

DRUGS (2)
  1. LUMIGAN [Suspect]
     Active Substance: BIMATOPROST
     Indication: GLAUCOMA
     Dosage: 2 GTT, QD
     Route: 047
     Dates: start: 201608, end: 201608
  2. LUMIGAN [Suspect]
     Active Substance: BIMATOPROST
     Dosage: 2 GTT, QD
     Route: 047

REACTIONS (6)
  - Photopsia [Recovered/Resolved]
  - Photophobia [Recovered/Resolved]
  - Vision blurred [Recovered/Resolved]
  - Product quality issue [Unknown]
  - Visual impairment [Recovered/Resolved]
  - Eye irritation [Recovered/Resolved]

NARRATIVE: CASE EVENT DATE: 201608
